FAERS Safety Report 21226179 (Version 3)
Quarter: 2022Q3

REPORT INFORMATION
  Report Type: Spontaneous
  Country: US (occurrence: US)
  Receive Date: 20220818
  Receipt Date: 20220919
  Transmission Date: 20221026
  Serious: No
  Sender: FDA-Public Use
  Company Number: US-GSK-US2022AMR118889

PATIENT
  Age: 75 Year
  Sex: Female

DRUGS (1)
  1. TRELEGY ELLIPTA [Suspect]
     Active Substance: FLUTICASONE FUROATE\UMECLIDINIUM BROMIDE\VILANTEROL TRIFENATATE
     Indication: Chronic obstructive pulmonary disease
     Dosage: UNK (100/62.5/25 MCG)

REACTIONS (5)
  - Glossitis [Unknown]
  - Vision blurred [Not Recovered/Not Resolved]
  - Photophobia [Not Recovered/Not Resolved]
  - Wrong technique in device usage process [Unknown]
  - Product complaint [Unknown]

NARRATIVE: CASE EVENT DATE: 20220815
